FAERS Safety Report 8664684 (Version 3)
Quarter: 2012Q4

REPORT INFORMATION
  Report Type: 
  Country: US (occurrence: US)
  Receive Date: 20120713
  Receipt Date: 20120829
  Transmission Date: 20130627
  Serious: Yes (Death, Other)
  Sender: FDA-Public Use
  Company Number: US-MPIJNJ-2012-04875

PATIENT
  Age: 44 Year
  Sex: Female

DRUGS (11)
  1. VELCADE [Suspect]
     Indication: PROPHYLAXIS AGAINST TRANSPLANT REJECTION
     Dosage: 1.3 mg/m2, Cyclic
     Route: 042
  2. METHYLPREDNISOLONE [Suspect]
     Indication: PROPHYLAXIS AGAINST TRANSPLANT REJECTION
     Dosage: 125 mg, Cyclic
     Route: 042
  3. METHYLPREDNISOLONE [Suspect]
     Dosage: 500 mg, UNK
     Route: 042
  4. IMMUNOGLOBULINS [Suspect]
     Indication: PROPHYLAXIS AGAINST TRANSPLANT REJECTION
     Dosage: 0.5 mg/kg, Cyclic
     Route: 042
  5. IMMUNOGLOBULINS [Suspect]
     Dosage: UNK
  6. TACROLIMUS [Suspect]
     Indication: PROPHYLAXIS AGAINST TRANSPLANT REJECTION
     Dosage: UNK
  7. MYCOPHENOLATE MOFETIL [Suspect]
     Indication: PROPHYLAXIS AGAINST TRANSPLANT REJECTION
     Dosage: 500 mg, bid
  8. MYCOPHENOLATE MOFETIL [Suspect]
     Dosage: 1 g, UNK
     Route: 042
  9. THYMOGLOBULIN [Suspect]
     Dosage: 1.25 UNK, UNK
     Route: 042
  10. PREDNISONE [Concomitant]
     Indication: ADRENAL INSUFFICIENCY
     Dosage: 10 mg, UNK
  11. RITUXIMAB [Concomitant]
     Indication: PROPHYLAXIS AGAINST TRANSPLANT REJECTION
     Dosage: 375 mg/m2, UNK

REACTIONS (11)
  - Calciphylaxis [Fatal]
  - Asthenia [Fatal]
  - Mesenteric haemorrhage [Recovering/Resolving]
  - Colonic fistula [Not Recovered/Not Resolved]
  - Transplant rejection [Recovering/Resolving]
  - Device related sepsis [Recovering/Resolving]
  - Enterococcal infection [Not Recovered/Not Resolved]
  - Escherichia infection [Not Recovered/Not Resolved]
  - Sepsis [Unknown]
  - Impaired healing [Unknown]
  - Blood creatinine increased [Recovering/Resolving]
